FAERS Safety Report 21137205 (Version 2)
Quarter: 2022Q3

REPORT INFORMATION
  Report Type: Spontaneous
  Country: BR (occurrence: BR)
  Receive Date: 20220727
  Receipt Date: 20220803
  Transmission Date: 20221026
  Serious: Yes (Hospitalization, Other)
  Sender: FDA-Public Use
  Company Number: BR-TORRENT-00005818

PATIENT
  Age: 64 Year
  Sex: Female

DRUGS (1)
  1. VENLAFAXINE [Suspect]
     Active Substance: VENLAFAXINE HYDROCHLORIDE
     Indication: Depression
     Dosage: UNKNOWN
     Route: 065

REACTIONS (5)
  - Cataplexy [Not Recovered/Not Resolved]
  - Loss of personal independence in daily activities [Unknown]
  - Sleep disorder [Unknown]
  - Drug withdrawal syndrome [Unknown]
  - Narcolepsy [Unknown]
